FAERS Safety Report 12840071 (Version 2)
Quarter: 2016Q4

REPORT INFORMATION
  Report Type: Spontaneous
  Country: CO (occurrence: CO)
  Receive Date: 20161012
  Receipt Date: 20161116
  Transmission Date: 20170207
  Serious: Yes (Other)
  Sender: FDA-Public Use
  Company Number: CO-PFIZER INC-2016473765

PATIENT
  Age: 41 Year
  Sex: Female

DRUGS (1)
  1. MEDROL [Suspect]
     Active Substance: METHYLPREDNISOLONE
     Indication: RHEUMATOID ARTHRITIS
     Dosage: 8 MG, DAILY
     Route: 048

REACTIONS (6)
  - Wound [Recovered/Resolved]
  - Laceration [Recovered/Resolved]
  - Wound infection [Recovered/Resolved]
  - Wound necrosis [Recovered/Resolved]
  - Skin ulcer [Recovered/Resolved]
  - Skin atrophy [Unknown]

NARRATIVE: CASE EVENT DATE: 20160404
